FAERS Safety Report 5493270-2 (Version None)
Quarter: 2007Q4

REPORT INFORMATION
  Report Type: 
  Country: None (occurrence: None)
  Receive Date: 20071023
  Receipt Date: 20071010
  Transmission Date: 20080405
  Serious: Yes (Other)
  Sender: FDA-Public Use
  Company Number: US-AMGEN-STX247486

PATIENT
  Sex: Male

DRUGS (4)
  1. ENBREL [Suspect]
     Indication: RHEUMATOID ARTHRITIS
     Route: 058
     Dates: start: 20041201
  2. ENBREL [Suspect]
     Indication: OSTEOARTHRITIS
  3. METHOTREXATE [Concomitant]
  4. CELEBREX [Concomitant]

REACTIONS (4)
  - INJECTION SITE IRRITATION [None]
  - INJECTION SITE PAIN [None]
  - RENAL FAILURE [None]
  - RHEUMATOID ARTHRITIS [None]
